FAERS Safety Report 21043335 (Version 1)
Quarter: 2022Q3

REPORT INFORMATION
  Report Type: Spontaneous
  Country: US (occurrence: None)
  Receive Date: 20220703
  Receipt Date: 20220703
  Transmission Date: 20221027
  Serious: Yes (Disabling)
  Sender: FDA-Public Use
  Company Number: None

PATIENT
  Age: 42 Year
  Sex: Female
  Weight: 51.75 kg

DRUGS (3)
  1. COMPLETE CARE WHOLE MOUTH PROTECTION [Suspect]
     Active Substance: SODIUM FLUORIDE
     Indication: Dental care
     Dosage: FREQUENCY : TWICE A DAY;?
     Dates: end: 20220701
  2. VITAMIN D [Concomitant]
     Active Substance: VITAMIN D NOS
  3. VITAMINS [Concomitant]
     Active Substance: VITAMINS

REACTIONS (6)
  - Gingival swelling [None]
  - Gingival erythema [None]
  - Hyperaesthesia teeth [None]
  - Tooth disorder [None]
  - Oral discomfort [None]
  - Product quality issue [None]

NARRATIVE: CASE EVENT DATE: 20220701
